FAERS Safety Report 8104461-6 (Version None)
Quarter: 2012Q1

REPORT INFORMATION
  Report Type: 
  Country: None (occurrence: None)
  Receive Date: 20120201
  Receipt Date: 20120125
  Transmission Date: 20120608
  Serious: Yes (Other)
  Sender: FDA-Public Use
  Company Number: PHHY2011TR85119

PATIENT
  Age: 24 Year
  Sex: Male

DRUGS (1)
  1. CEFAZOLIN [Suspect]
     Indication: RESPIRATORY TRACT INFECTION
     Dosage: 1000 MG, UNK
     Route: 042

REACTIONS (8)
  - PERIORBITAL HAEMATOMA [None]
  - DRY EYE [None]
  - EPISTAXIS [None]
  - DRUG ERUPTION [None]
  - CONJUNCTIVITIS [None]
  - EAR HAEMORRHAGE [None]
  - SYMBLEPHARON [None]
  - TEAR DISCOLOURATION [None]
